FAERS Safety Report 11171399 (Version 1)
Quarter: 2015Q2

REPORT INFORMATION
  Report Type: Spontaneous
  Country: US (occurrence: None)
  Receive Date: 20150515
  Receipt Date: 20150515
  Transmission Date: 20150821
  Serious: Yes (Other)
  Sender: FDA-Public Use
  Company Number: 106155

PATIENT
  Sex: Female
  Weight: 49.9 kg

DRUGS (4)
  1. DIFLUCAN [Concomitant]
     Active Substance: FLUCONAZOLE
  2. CIMZIA [Suspect]
     Active Substance: CERTOLIZUMAB PEGOL
     Indication: CROHN^S DISEASE
     Dosage: HELD IN DEC/JAN 2014, SUBCUTANEOUS
     Route: 058
     Dates: start: 201308
  3. NYSTATIN. [Concomitant]
     Active Substance: NYSTATIN
  4. CIMZIA [Suspect]
     Active Substance: CERTOLIZUMAB PEGOL
     Indication: CROHN^S DISEASE
     Dates: start: 201402, end: 2014

REACTIONS (2)
  - Psoriasis [None]
  - Anaemia [None]

NARRATIVE: CASE EVENT DATE: 201308
